FAERS Safety Report 10091043 (Version 1)
Quarter: 2014Q2

REPORT INFORMATION
  Report Type: Report from Study
  Country: US (occurrence: US)
  Receive Date: 20140421
  Receipt Date: 20140421
  Transmission Date: 20141212
  Serious: Yes (Hospitalization, Other)
  Sender: FDA-Public Use
  Company Number: US-ABBVIE-14P-163-1223895-00

PATIENT
  Sex: Female
  Weight: 65.83 kg

DRUGS (10)
  1. HUMIRA [Suspect]
     Indication: RHEUMATOID ARTHRITIS
  2. LISINOPRIL [Concomitant]
     Indication: HYPERTENSION
  3. DILTIAZEM [Concomitant]
     Indication: HYPERTENSION
  4. VENLAFAXINE [Concomitant]
     Indication: DEPRESSION
  5. PREDNISONE [Concomitant]
     Indication: RHEUMATOID ARTHRITIS
  6. METOPROLOL [Concomitant]
     Indication: HYPERTENSION
  7. BUPROPION [Concomitant]
     Indication: DEPRESSION
  8. BUPROPION [Concomitant]
     Indication: ANXIETY
  9. BUSPIRONE [Concomitant]
     Indication: DEPRESSION
  10. BUSPIRONE [Concomitant]
     Indication: ANXIETY

REACTIONS (12)
  - Hyperhidrosis [Recovered/Resolved]
  - Urine flow decreased [Recovered/Resolved]
  - Dry mouth [Recovered/Resolved]
  - Dehydration [Recovered/Resolved]
  - Renal failure [Recovered/Resolved]
  - Renal function test abnormal [Recovered/Resolved]
  - Liver function test abnormal [Recovered/Resolved]
  - Abscess [Recovered/Resolved]
  - Staphylococcal infection [Recovered/Resolved]
  - White blood cell count increased [Unknown]
  - Liver function test abnormal [Unknown]
  - Renal function test abnormal [Unknown]
